FAERS Safety Report 9625632 (Version 1)
Quarter: 2013Q4

REPORT INFORMATION
  Report Type: Spontaneous
  Country: US (occurrence: None)
  Receive Date: 20131015
  Receipt Date: 20131015
  Transmission Date: 20140711
  Serious: Yes (Hospitalization)
  Sender: FDA-Public Use
  Company Number: None

PATIENT
  Age: 55 Year
  Sex: Male

DRUGS (1)
  1. REUMOFAN [Suspect]
     Indication: PRODUCT USED FOR UNKNOWN INDICATION

REACTIONS (11)
  - Nausea [None]
  - Vomiting [None]
  - Malaise [None]
  - Jaundice [None]
  - Headache [None]
  - Diarrhoea [None]
  - Ocular icterus [None]
  - Syncope [None]
  - Presyncope [None]
  - Hyperhidrosis [None]
  - Liver function test abnormal [None]
